FAERS Safety Report 5720770-X (Version None)
Quarter: 2008Q2

REPORT INFORMATION
  Report Type: 
  Country: None (occurrence: None)
  Receive Date: 20080425
  Receipt Date: 20080425
  Transmission Date: 20081010
  Serious: No
  Sender: FDA-Public Use
  Company Number: None

PATIENT
  Age: 27 Year
  Sex: Female

DRUGS (1)
  1. FERRIC NA GLUCONATE [Suspect]
     Dosage: ONCE IV
     Route: 042
     Dates: start: 20070905, end: 20070905

REACTIONS (4)
  - ARTHRALGIA [None]
  - MYALGIA [None]
  - PRURITUS [None]
  - URTICARIA [None]
